FAERS Safety Report 16859254 (Version 15)
Quarter: 2020Q2

REPORT INFORMATION
  Report Type: Spontaneous
  Country: US (occurrence: US)
  Receive Date: 20190926
  Receipt Date: 20200623
  Transmission Date: 20200713
  Serious: Yes (Other)
  Sender: FDA-Public Use
  Company Number: US-ALEXION PHARMACEUTICALS INC.-A201914141

PATIENT
  Sex: Male
  Weight: 64.4 kg

DRUGS (28)
  1. SINGULAIR [Concomitant]
     Active Substance: MONTELUKAST SODIUM
     Indication: PRODUCT USED FOR UNKNOWN INDICATION
     Dosage: UNK
     Route: 065
  2. BENEFIBER                          /01648102/ [Concomitant]
     Active Substance: GUAR GUM
     Indication: PRODUCT USED FOR UNKNOWN INDICATION
     Dosage: UNK
     Route: 065
  3. KANUMA [Suspect]
     Active Substance: SEBELIPASE ALFA
     Dosage: 80 MG, Q2W
     Route: 042
     Dates: start: 20191018
  4. KANUMA [Suspect]
     Active Substance: SEBELIPASE ALFA
     Dosage: 80 MG, Q2W
     Route: 042
     Dates: start: 20190207
  5. PROAIR HFA [Concomitant]
     Active Substance: ALBUTEROL SULFATE
     Dosage: UNK
     Route: 065
  6. ACAMPROSATE CALCIUM. [Concomitant]
     Active Substance: ACAMPROSATE CALCIUM
     Indication: PRODUCT USED FOR UNKNOWN INDICATION
     Dosage: UNK
     Route: 065
  7. MULTIVITAMINS [Concomitant]
     Active Substance: VITAMINS
     Indication: PRODUCT USED FOR UNKNOWN INDICATION
     Dosage: UNK
     Route: 065
  8. HEPARIN [Concomitant]
     Active Substance: HEPARIN SODIUM
     Indication: PRODUCT USED FOR UNKNOWN INDICATION
     Dosage: UNK
     Route: 065
  9. EPINEPHRINE. [Concomitant]
     Active Substance: EPINEPHRINE
     Indication: PRODUCT USED FOR UNKNOWN INDICATION
     Dosage: UNK
     Route: 065
  10. ATORVASTATIN [Concomitant]
     Active Substance: ATORVASTATIN
     Indication: PRODUCT USED FOR UNKNOWN INDICATION
     Dosage: UNK
     Route: 065
  11. LISINOPRIL. [Concomitant]
     Active Substance: LISINOPRIL
     Indication: PRODUCT USED FOR UNKNOWN INDICATION
     Dosage: UNK
     Route: 065
  12. ADVAIR HFA [Concomitant]
     Active Substance: FLUTICASONE PROPIONATE\SALMETEROL XINAFOATE
     Indication: PRODUCT USED FOR UNKNOWN INDICATION
     Dosage: UNK
     Route: 065
  13. NORMAL SALINE [Concomitant]
     Active Substance: SODIUM CHLORIDE
     Indication: PRODUCT USED FOR UNKNOWN INDICATION
     Dosage: UNK
     Route: 065
  14. KANUMA [Suspect]
     Active Substance: SEBELIPASE ALFA
     Dosage: 80 MG, Q2W
     Route: 042
     Dates: start: 20191018
  15. CYCLOBENZAPRINE. [Concomitant]
     Active Substance: CYCLOBENZAPRINE
     Indication: PRODUCT USED FOR UNKNOWN INDICATION
     Dosage: UNK
     Route: 065
  16. KANUMA [Suspect]
     Active Substance: SEBELIPASE ALFA
     Indication: LIPID METABOLISM DISORDER
     Dosage: 80 MG, Q2W
     Route: 042
     Dates: start: 20190204
  17. LIDOCAINE. [Concomitant]
     Active Substance: LIDOCAINE
     Indication: PRODUCT USED FOR UNKNOWN INDICATION
     Dosage: UNK
     Route: 065
  18. LMX4 [Concomitant]
     Active Substance: LIDOCAINE
     Indication: PRODUCT USED FOR UNKNOWN INDICATION
     Dosage: UNK
     Route: 065
  19. KANUMA [Suspect]
     Active Substance: SEBELIPASE ALFA
     Dosage: 80 MG, Q2W
     Route: 042
     Dates: start: 20190207
  20. SODIUM CHLORIDE. [Concomitant]
     Active Substance: SODIUM CHLORIDE
     Indication: PRODUCT USED FOR UNKNOWN INDICATION
     Dosage: UNK
     Route: 065
  21. IRON [Concomitant]
     Active Substance: IRON
     Indication: PRODUCT USED FOR UNKNOWN INDICATION
     Dosage: UNK
     Route: 065
  22. VITAMIN D3 [Concomitant]
     Active Substance: CHOLECALCIFEROL
     Indication: PRODUCT USED FOR UNKNOWN INDICATION
     Dosage: UNK
     Route: 065
  23. FAMOTIDINE. [Concomitant]
     Active Substance: FAMOTIDINE
     Indication: PRODUCT USED FOR UNKNOWN INDICATION
     Dosage: UNK
     Route: 065
  24. BENZONATATE. [Concomitant]
     Active Substance: BENZONATATE
     Indication: PRODUCT USED FOR UNKNOWN INDICATION
     Dosage: UNK
     Route: 065
  25. KANUMA [Suspect]
     Active Substance: SEBELIPASE ALFA
     Indication: OFF LABEL USE
     Dosage: 80 MG, Q2W
     Route: 058
     Dates: start: 20190207
  26. KANUMA [Suspect]
     Active Substance: SEBELIPASE ALFA
     Dosage: 80 MG, Q2W
     Route: 042
     Dates: start: 20190204
  27. DIPHENHYDRAMINE. [Concomitant]
     Active Substance: DIPHENHYDRAMINE
     Indication: PRODUCT USED FOR UNKNOWN INDICATION
     Dosage: UNK
     Route: 065
  28. PROAIR HFA [Concomitant]
     Active Substance: ALBUTEROL SULFATE
     Indication: PRODUCT USED FOR UNKNOWN INDICATION
     Dosage: 90 ?G, UNK
     Route: 065

REACTIONS (13)
  - Haemorrhoids [Unknown]
  - Nasal congestion [Unknown]
  - Irritable bowel syndrome [Not Recovered/Not Resolved]
  - Headache [Unknown]
  - Dizziness [Unknown]
  - Haematochezia [Not Recovered/Not Resolved]
  - Incorrect route of product administration [Recovered/Resolved]
  - Diarrhoea [Unknown]
  - Injection site pain [Recovered/Resolved]
  - Cough [Unknown]
  - Off label use [Not Recovered/Not Resolved]
  - Neck pain [Unknown]
  - Flatulence [Unknown]
